FAERS Safety Report 16841586 (Version 1)
Quarter: 2019Q3

REPORT INFORMATION
  Report Type: Spontaneous
  Country: IL (occurrence: IL)
  Receive Date: 20190923
  Receipt Date: 20190923
  Transmission Date: 20191005
  Serious: Yes (Other)
  Sender: FDA-Public Use
  Company Number: IL-009507513-1909ISR007752

PATIENT
  Age: 84 Year
  Sex: Male

DRUGS (1)
  1. KEYTRUDA [Suspect]
     Active Substance: PEMBROLIZUMAB
     Dosage: UNK
     Dates: start: 201707, end: 201903

REACTIONS (3)
  - Acute kidney injury [Unknown]
  - Nephritis [Unknown]
  - Arthritis [Unknown]

NARRATIVE: CASE EVENT DATE: 2019
